FAERS Safety Report 4686212-0 (Version None)
Quarter: 2005Q2

REPORT INFORMATION
  Report Type: 
  Country: None (occurrence: None)
  Receive Date: 20050607
  Receipt Date: 20050524
  Transmission Date: 20051028
  Serious: Yes (Other)
  Sender: FDA-Public Use
  Company Number: 2005059030

PATIENT
  Age: 40 Year
  Sex: Male
  Weight: 90.7194 kg

DRUGS (11)
  1. DAYPRO [Suspect]
     Indication: NERVE INJURY
     Dosage: 1600 MG (1 IN 1 D) ORAL
     Route: 048
  2. BEXTRA [Suspect]
     Indication: NERVE INJURY
     Dosage: 20 MG (10 MG, 2 IN 1 D) ORAL
     Route: 048
     Dates: end: 20050411
  3. METHADONE HCL [Concomitant]
  4. ELAVIL [Concomitant]
  5. DESIPRAMIDE HCL [Concomitant]
  6. DEPAKOTE [Concomitant]
  7. TEGRETOL [Concomitant]
  8. LAMICTAL [Concomitant]
  9. OXYCONTIN [Concomitant]
  10. VICODIN [Concomitant]
  11. PREDNISONE [Concomitant]

REACTIONS (6)
  - DRUG INEFFECTIVE [None]
  - ENDOSCOPY [None]
  - NERVE INJURY [None]
  - PAIN [None]
  - STOMACH DISCOMFORT [None]
  - SURGERY [None]
